FAERS Safety Report 8575975-X (Version None)
Quarter: 2012Q3

REPORT INFORMATION
  Report Type: 
  Country: None (occurrence: None)
  Receive Date: 20120807
  Receipt Date: 20120731
  Transmission Date: 20120928
  Serious: No
  Sender: FDA-Public Use
  Company Number: US-B.I. PHARMACEUTICALS,INC./RIDGEFIELD-2012-BP-14648BP

PATIENT
  Sex: Female

DRUGS (15)
  1. ASPIRIN [Concomitant]
     Indication: BLOOD DISORDER
     Dosage: 81 MG
     Route: 048
  2. SPIRIVA [Suspect]
     Indication: CHRONIC OBSTRUCTIVE PULMONARY DISEASE
     Dosage: 18 MCG
     Route: 055
     Dates: start: 20070101
  3. VITAMIN D [Concomitant]
     Indication: VITAMIN D DEFICIENCY
     Dosage: 50000 NR
     Route: 048
  4. FLUTICOSONE SP [Concomitant]
     Indication: MULTIPLE ALLERGIES
     Dosage: 150 MCG
     Route: 045
  5. SPIRIVA [Suspect]
     Indication: BRONCHITIS CHRONIC
  6. ASPIRIN [Concomitant]
     Indication: CARDIAC DISORDER
  7. NEXIUM [Concomitant]
     Indication: ABDOMINAL DISCOMFORT
     Dosage: 80 MG
     Route: 048
  8. FLUTICASONE PROPIONATE [Concomitant]
     Indication: CHRONIC OBSTRUCTIVE PULMONARY DISEASE
     Dosage: 250 NR
     Route: 055
     Dates: start: 20070101
  9. ALBUTEROL [Concomitant]
     Indication: DYSPNOEA
     Dosage: 0.083 NR
     Route: 055
  10. FOLIC ACID [Concomitant]
     Indication: CARDIAC DISORDER
     Dosage: 1 MG
     Route: 048
     Dates: start: 20090101
  11. VENTOLIN HFA [Concomitant]
     Indication: DYSPNOEA
     Dosage: 90 MCG
     Route: 055
  12. LIPITOR [Concomitant]
     Indication: BLOOD CHOLESTEROL INCREASED
     Dosage: 40 MCG
     Route: 048
  13. DIGOXIN [Concomitant]
     Indication: CARDIAC DISORDER
     Dosage: 0.25 MG
     Route: 048
  14. FLUTICASONE PROPIONATE [Concomitant]
     Indication: BRONCHITIS CHRONIC
  15. ZYRTEC [Concomitant]
     Indication: SEASONAL ALLERGY
     Route: 048
     Dates: start: 20120101

REACTIONS (6)
  - AGITATION [None]
  - DYSPNOEA [None]
  - NEURALGIA [None]
  - CONDITION AGGRAVATED [None]
  - CARDIAC DISORDER [None]
  - VITREOUS DETACHMENT [None]
